FAERS Safety Report 17420087 (Version 2)
Quarter: 2020Q1

REPORT INFORMATION
  Report Type: Report from Study
  Country: JP (occurrence: JP)
  Receive Date: 20200214
  Receipt Date: 20200326
  Transmission Date: 20200409
  Serious: Yes (Other)
  Sender: FDA-Public Use
  Company Number: JP-GILEAD-2020-0451018

PATIENT
  Age: 14 Year
  Sex: Male

DRUGS (14)
  1. TADALAFIL. [Concomitant]
     Active Substance: TADALAFIL
     Indication: PULMONARY ARTERIAL HYPERTENSION
     Dosage: 20 MG, 1D
  2. AMBRISENTAN [Suspect]
     Active Substance: AMBRISENTAN
     Dosage: 5 MG, QD
     Route: 048
     Dates: start: 20140306, end: 20140313
  3. ADCIRCA [Concomitant]
     Active Substance: TADALAFIL
     Indication: PULMONARY ARTERIAL HYPERTENSION
     Dosage: 20 MG, 1D
     Dates: start: 20150114
  4. AMBRISENTAN [Suspect]
     Active Substance: AMBRISENTAN
     Dosage: 3.75 MG, QD
     Route: 048
     Dates: start: 20140228, end: 20140305
  5. AMBRISENTAN [Suspect]
     Active Substance: AMBRISENTAN
     Dosage: 6.5 MG, QD
     Route: 048
     Dates: start: 20140314
  6. AMBRISENTAN [Suspect]
     Active Substance: AMBRISENTAN
     Indication: PULMONARY ARTERIAL HYPERTENSION
     Dosage: 2.5 MG, QD
     Route: 048
     Dates: start: 20140123, end: 20140207
  7. OXYGEN. [Concomitant]
     Active Substance: OXYGEN
  8. AMBRISENTAN [Suspect]
     Active Substance: AMBRISENTAN
     Dosage: 7.5 MG, QD
     Route: 048
  9. SILDENAFIL CITRATE. [Concomitant]
     Active Substance: SILDENAFIL CITRATE
     Dosage: UNK
  10. SILDENAFIL CITRATE. [Concomitant]
     Active Substance: SILDENAFIL CITRATE
     Dosage: UNK
  11. WARFARIN (JAPANESE TRADENAME) [Concomitant]
     Active Substance: WARFARIN POTASSIUM
     Indication: PROPHYLAXIS
     Dosage: UNK
     Dates: start: 20140122
  12. PERSANTIN [Concomitant]
     Active Substance: DIPYRIDAMOLE
     Indication: PROPHYLAXIS
     Dosage: UNK
     Dates: start: 20140210
  13. AMBRISENTAN [Suspect]
     Active Substance: AMBRISENTAN
     Dosage: 1.25 MG, QD
     Route: 048
     Dates: start: 20140208, end: 20140219
  14. AMBRISENTAN [Suspect]
     Active Substance: AMBRISENTAN
     Dosage: 2.5 MG, QD
     Route: 048
     Dates: start: 20140220, end: 20140227

REACTIONS (4)
  - Hepatic function abnormal [Recovered/Resolved]
  - Product use issue [Unknown]
  - Pneumothorax spontaneous [Unknown]
  - Syncope [Recovered/Resolved]

NARRATIVE: CASE EVENT DATE: 20140123
